FAERS Safety Report 5359626-3 (Version None)
Quarter: 2007Q2

REPORT INFORMATION
  Report Type: 
  Country: None (occurrence: None)
  Receive Date: 20070615
  Receipt Date: 20070601
  Transmission Date: 20071010
  Serious: Yes (Hospitalization, Other)
  Sender: FDA-Public Use
  Company Number: US-SHR-US-2007-020643

PATIENT
  Age: 62 Year
  Sex: Female

DRUGS (3)
  1. BETASERON [Suspect]
     Dosage: 8 MIU, EVERY 2D
     Route: 058
     Dates: start: 20000131, end: 20070413
  2. BETASERON [Suspect]
     Dosage: 8 MIU, EVERY 2D
     Route: 058
     Dates: start: 20070601
  3. LITHIUM CARBONATE [Suspect]
     Dates: end: 20070401

REACTIONS (7)
  - DRUG INTERACTION [None]
  - LOSS OF CONSCIOUSNESS [None]
  - MULTIPLE SCLEROSIS [None]
  - PNEUMONIA [None]
  - THERAPEUTIC AGENT TOXICITY [None]
  - VOMITING [None]
  - WEIGHT DECREASED [None]
